FAERS Safety Report 19381234 (Version 1)
Quarter: 2021Q2

REPORT INFORMATION
  Report Type: Spontaneous
  Country: US (occurrence: US)
  Receive Date: 20210607
  Receipt Date: 20210607
  Transmission Date: 20210717
  Serious: No
  Sender: FDA-Public Use
  Company Number: US-ASTRAZENECA-2021A239832

PATIENT
  Age: 55 Year
  Sex: Male
  Weight: 136.1 kg

DRUGS (6)
  1. BREZTRI AEROSPHERE [Suspect]
     Active Substance: BUDESONIDE\FORMOTEROL\GLYCOPYRRONIUM
     Indication: CHRONIC OBSTRUCTIVE PULMONARY DISEASE
     Dosage: 2 PUFFS AM TO PM
     Route: 055
     Dates: start: 2021
  2. BREZTRI AEROSPHERE [Suspect]
     Active Substance: BUDESONIDE\FORMOTEROL\GLYCOPYRRONIUM
     Indication: FIBROSIS
     Dosage: 2 PUFFS AM TO PM
     Route: 055
     Dates: start: 2021
  3. BREZTRI AEROSPHERE [Suspect]
     Active Substance: BUDESONIDE\FORMOTEROL\GLYCOPYRRONIUM
     Indication: FIBROSIS
     Dosage: 160/9/4.8 MCG 2 PUFFS TWICE DAILY
     Route: 055
     Dates: start: 202012
  4. BREZTRI AEROSPHERE [Suspect]
     Active Substance: BUDESONIDE\FORMOTEROL\GLYCOPYRRONIUM
     Indication: EMPHYSEMA
     Dosage: 160/9/4.8 MCG 2 PUFFS TWICE DAILY
     Route: 055
     Dates: start: 202012
  5. BREZTRI AEROSPHERE [Suspect]
     Active Substance: BUDESONIDE\FORMOTEROL\GLYCOPYRRONIUM
     Indication: EMPHYSEMA
     Dosage: 2 PUFFS AM TO PM
     Route: 055
     Dates: start: 2021
  6. BREZTRI AEROSPHERE [Suspect]
     Active Substance: BUDESONIDE\FORMOTEROL\GLYCOPYRRONIUM
     Indication: CHRONIC OBSTRUCTIVE PULMONARY DISEASE
     Dosage: 160/9/4.8 MCG 2 PUFFS TWICE DAILY
     Route: 055
     Dates: start: 202012

REACTIONS (4)
  - Device use issue [Unknown]
  - Product packaging quantity issue [Unknown]
  - Fibrosis [Not Recovered/Not Resolved]
  - Device malfunction [Unknown]

NARRATIVE: CASE EVENT DATE: 2020
